FAERS Safety Report 23469755 (Version 1)
Quarter: 2024Q1

REPORT INFORMATION
  Report Type: Spontaneous
  Country: GB (occurrence: GB)
  Receive Date: 20240202
  Receipt Date: 20240202
  Transmission Date: 20240410
  Serious: No
  Sender: FDA-Public Use
  Company Number: None

PATIENT
  Age: 77 Year
  Sex: Male
  Weight: 83 kg

DRUGS (5)
  1. EZETIMIBE [Suspect]
     Active Substance: EZETIMIBE
     Indication: Hypercholesterolaemia
     Dosage: 10 MILLIGRAM, QD (TABLET) (ONE DAY)
     Route: 065
     Dates: start: 20221110
  2. EZETIMIBE [Suspect]
     Active Substance: EZETIMIBE
     Indication: Coronary artery disease
  3. Bivalent Spikevax [Concomitant]
     Indication: Product used for unknown indication
     Dosage: 0.5 MILLILITER, QD
     Route: 030
     Dates: start: 20220913, end: 20220913
  4. DIAZEPAM [Concomitant]
     Active Substance: DIAZEPAM
     Indication: Anxiety
     Dosage: 1 DOSAGE FORM, TID,ONE TO BE TAKEN UP TO THREE TIMES A DAY
     Route: 065
     Dates: start: 20221111
  5. FLUOXETINE [Concomitant]
     Active Substance: FLUOXETINE HYDROCHLORIDE
     Indication: Mixed anxiety and depressive disorder
     Dosage: 1 DOSAGE FORM (ONE TO BE TAKEN EACH DAY)
     Route: 065
     Dates: start: 20221031

REACTIONS (1)
  - Diarrhoea [Recovered/Resolved]

NARRATIVE: CASE EVENT DATE: 20221111
